FAERS Safety Report 18207901 (Version 1)
Quarter: 2020Q3

REPORT INFORMATION
  Report Type: Spontaneous
  Country: US (occurrence: US)
  Receive Date: 20200828
  Receipt Date: 20200828
  Transmission Date: 20201103
  Serious: Yes (Hospitalization)
  Sender: FDA-Public Use
  Company Number: US-USWM, LLC-UWM202007-000006

PATIENT
  Age: 25 Year
  Sex: Male

DRUGS (4)
  1. MYDAYIS XR [Concomitant]
  2. LAMOTRIGINE. [Concomitant]
     Active Substance: LAMOTRIGINE
     Indication: AFFECTIVE DISORDER
  3. LUCEMYRA [Suspect]
     Active Substance: LOFEXIDINE
     Indication: PRODUCT USED FOR UNKNOWN INDICATION
     Dosage: NOT PROVIDED
  4. EFFEXOR [Concomitant]
     Active Substance: VENLAFAXINE HYDROCHLORIDE

REACTIONS (4)
  - Somnolence [Unknown]
  - Drug withdrawal syndrome [Unknown]
  - Product prescribing error [Unknown]
  - Road traffic accident [Unknown]

NARRATIVE: CASE EVENT DATE: 202007
